FAERS Safety Report 9307051 (Version 2)
Quarter: 2013Q4

REPORT INFORMATION
  Report Type: Spontaneous
  Country: US (occurrence: US)
  Receive Date: 20130523
  Receipt Date: 20131115
  Transmission Date: 20140711
  Serious: Yes (Hospitalization)
  Sender: FDA-Public Use
  Company Number: US-B.I. PHARMACEUTICALS,INC./RIDGEFIELD-2013-BI-14403BP

PATIENT
  Age: 50 Year
  Sex: Female
  Weight: 56.7 kg

DRUGS (6)
  1. PRADAXA [Suspect]
     Indication: ANTICOAGULANT THERAPY
     Dates: start: 20111028, end: 20111029
  2. PRADAXA [Suspect]
     Indication: ATRIAL FIBRILLATION
  3. CITALOPRAM [Concomitant]
     Dates: start: 2007
  4. BUPROPION [Concomitant]
     Dates: start: 2007
  5. GABAPENTIN [Concomitant]
     Dates: start: 2007, end: 2013
  6. DILTIAZEM [Concomitant]
     Dates: start: 2011

REACTIONS (3)
  - Gastrointestinal haemorrhage [Unknown]
  - Haemorrhagic anaemia [Unknown]
  - Coagulopathy [Unknown]
